FAERS Safety Report 5895052-6 (Version None)
Quarter: 2008Q3

REPORT INFORMATION
  Report Type: 
  Country: None (occurrence: None)
  Receive Date: 20080924
  Receipt Date: 20080917
  Transmission Date: 20090109
  Serious: Yes (Disabling, Other)
  Sender: FDA-Public Use
  Company Number: GB-PFIZER INC-2008078926

PATIENT
  Sex: Male

DRUGS (1)
  1. SALAZOPYRIN [Suspect]
     Indication: RHEUMATOID ARTHRITIS

REACTIONS (2)
  - FEMUR FRACTURE [None]
  - IMPAIRED HEALING [None]
